FAERS Safety Report 6219757-2 (Version None)
Quarter: 2009Q2

REPORT INFORMATION
  Report Type: 
  Country: None (occurrence: None)
  Receive Date: 20090609
  Receipt Date: 20090526
  Transmission Date: 20091009
  Serious: Yes (Congenital Anomaly)
  Sender: FDA-Public Use
  Company Number: A0756642A

PATIENT
  Sex: Male
  Weight: 3.3 kg

DRUGS (3)
  1. PAXIL [Suspect]
     Indication: DEPRESSION
     Dosage: 20MG PER DAY
     Dates: start: 19970101, end: 20040101
  2. VITAMIN TAB [Concomitant]
  3. TYLENOL (CAPLET) [Concomitant]

REACTIONS (7)
  - ASTHMA [None]
  - CARDIAC MURMUR [None]
  - CARDIAC VALVE DISEASE [None]
  - DEVELOPMENTAL DELAY [None]
  - DRUG EXPOSURE DURING PREGNANCY [None]
  - SPEECH DISORDER DEVELOPMENTAL [None]
  - STRABISMUS [None]
